FAERS Safety Report 9226410 (Version 1)
Quarter: 2013Q2

REPORT INFORMATION
  Report Type: Spontaneous
  Country: US (occurrence: US)
  Receive Date: 20130411
  Receipt Date: 20130411
  Transmission Date: 20140414
  Serious: Yes (Life-Threatening, Other)
  Sender: FDA-Public Use
  Company Number: US-BAXTER-2013BAX012676

PATIENT
  Age: 9 Year
  Sex: Female

DRUGS (4)
  1. IFOSFAMIDE FOR INJECTION [Suspect]
     Indication: UNDIFFERENTIATED SARCOMA
  2. DOXORUBICIN [Concomitant]
     Indication: UNDIFFERENTIATED SARCOMA
  3. ZOFRAN [Concomitant]
     Indication: NAUSEA
  4. DECADRON [Concomitant]
     Indication: NAUSEA

REACTIONS (9)
  - Paraneoplastic syndrome [Recovered/Resolved]
  - Arrhythmia [Recovered/Resolved]
  - Pancytopenia [Unknown]
  - Mental status changes [Recovered/Resolved]
  - Diarrhoea [Recovered/Resolved]
  - Electrolyte imbalance [Recovered/Resolved]
  - Torsade de pointes [None]
  - Pupil fixed [None]
  - Neurotoxicity [None]
